FAERS Safety Report 12453333 (Version 1)
Quarter: 2016Q2

REPORT INFORMATION
  Report Type: Report from Study
  Country: NL (occurrence: NL)
  Receive Date: 20160609
  Receipt Date: 20160609
  Transmission Date: 20160815
  Serious: Yes (Other)
  Sender: FDA-Public Use
  Company Number: NL-ABBVIE-16P-114-1566772-00

PATIENT
  Age: 76 Year
  Sex: Female
  Weight: 58 kg

DRUGS (2)
  1. DUODOPA [Suspect]
     Active Substance: CARBIDOPA\LEVODOPA
     Indication: PARKINSON^S DISEASE
     Dosage: MORNING DOSE 8.0, CONTINUOUS DOSE 3.7, EXTRA DOSE 2.0, NIGHT DOSE 1.9
     Route: 050
     Dates: start: 20060330
  2. DUODOPA [Suspect]
     Active Substance: CARBIDOPA\LEVODOPA
     Route: 050
     Dates: start: 201310

REACTIONS (12)
  - Fatigue [Recovering/Resolving]
  - Nausea [Recovering/Resolving]
  - Gastric perforation [Unknown]
  - Pallor [Recovering/Resolving]
  - Dyskinesia [Not Recovered/Not Resolved]
  - Drug effect decreased [Recovering/Resolving]
  - Constipation [Not Recovered/Not Resolved]
  - Syncope [Recovering/Resolving]
  - Excessive granulation tissue [Not Recovered/Not Resolved]
  - Weight decreased [Not Recovered/Not Resolved]
  - Asthenia [Recovering/Resolving]
  - Stoma site discharge [Not Recovered/Not Resolved]

NARRATIVE: CASE EVENT DATE: 201304
